FAERS Safety Report 18494008 (Version 3)
Quarter: 2020Q4

REPORT INFORMATION
  Report Type: Report from Study
  Country: JP (occurrence: JP)
  Receive Date: 20201111
  Receipt Date: 20201228
  Transmission Date: 20210114
  Serious: Yes (Life-Threatening, Hospitalization, Other)
  Sender: FDA-Public Use
  Company Number: JP-SA-2020SA315314

PATIENT

DRUGS (8)
  1. DEXAMETHASONE. [Suspect]
     Active Substance: DEXAMETHASONE
     Indication: PLASMA CELL MYELOMA
     Dosage: 40 MG, QW
     Route: 065
     Dates: start: 20200914, end: 20201012
  2. ISATUXIMAB [Suspect]
     Active Substance: ISATUXIMAB
     Indication: PLASMA CELL MYELOMA
     Dosage: 10 MG/KG, QW
     Route: 041
     Dates: start: 20200914, end: 20201012
  3. CALONAL [Concomitant]
     Active Substance: ACETAMINOPHEN
     Indication: CHEMOTHERAPY SIDE EFFECT PROPHYLAXIS
     Dosage: 600 MG/DAY
     Route: 065
     Dates: start: 20200914, end: 20201019
  4. BACTRAMIN [Concomitant]
     Active Substance: SULFAMETHOXAZOLE\TRIMETHOPRIM
     Indication: INFECTION PROPHYLAXIS
     Dosage: 1 TABLET/DAY
     Route: 065
     Dates: start: 2008, end: 20201022
  5. POMALIDOMIDE [Suspect]
     Active Substance: POMALIDOMIDE
     Indication: PLASMA CELL MYELOMA
     Dosage: 4 MG/DAY
     Route: 065
     Dates: start: 20201012, end: 20201022
  6. POMALIDOMIDE [Suspect]
     Active Substance: POMALIDOMIDE
     Dosage: 4 MG/DAY
     Route: 065
     Dates: start: 20200914, end: 20201004
  7. ACICLOVIR [Concomitant]
     Active Substance: ACYCLOVIR
     Indication: INFECTION PROPHYLAXIS
     Dosage: 200 MG/DAY
     Route: 065
     Dates: start: 2008, end: 20201022
  8. RESTAMIN #1 [Concomitant]
     Indication: CHEMOTHERAPY SIDE EFFECT PROPHYLAXIS
     Dosage: 60 MG/DAY
     Route: 065
     Dates: start: 20200914, end: 20201019

REACTIONS (2)
  - Sepsis [Not Recovered/Not Resolved]
  - Epistaxis [Recovering/Resolving]

NARRATIVE: CASE EVENT DATE: 20201019
